FAERS Safety Report 8461536-X (Version None)
Quarter: 2012Q2

REPORT INFORMATION
  Report Type: 
  Country: None (occurrence: None)
  Receive Date: 20120625
  Receipt Date: 20120619
  Transmission Date: 20120825
  Serious: No
  Sender: FDA-Public Use
  Company Number: US-PFIZER INC-2012147855

PATIENT
  Sex: Female

DRUGS (11)
  1. LEVOTHYROXINE [Concomitant]
     Dosage: 25 UG, UNK
  2. BENICAR [Concomitant]
     Dosage: 20 MG, UNK
  3. ESTRADIOL [Concomitant]
     Dosage: 0.5 MG, UNK
  4. VITAMIN D [Concomitant]
     Dosage: UNK
  5. ZOVIRAX [Concomitant]
     Dosage: 800 MG, (5 DOSES)
  6. BUPROPION [Concomitant]
     Dosage: 300 MG, UNK
  7. PROMETRIUM [Concomitant]
     Dosage: 100 MG, UNK
  8. POTASSIUM PENICILLIN G [Suspect]
     Dosage: UNK
  9. RELPAX [Concomitant]
     Dosage: 40 MG, UNK
  10. AMBIEN [Concomitant]
     Dosage: 6.25 MG, UNK
  11. GABAPENTIN [Concomitant]
     Dosage: 100 MG, UNK

REACTIONS (1)
  - HYPERSENSITIVITY [None]
